FAERS Safety Report 7372869-2 (Version None)
Quarter: 2011Q1

REPORT INFORMATION
  Report Type: 
  Country: None (occurrence: None)
  Receive Date: 20110324
  Receipt Date: 20110316
  Transmission Date: 20110831
  Serious: Yes (Other)
  Sender: FDA-Public Use
  Company Number: US-CEPHALON-2010004427

PATIENT
  Sex: Female
  Weight: 60 kg

DRUGS (4)
  1. RITALIN [Suspect]
     Dates: start: 20101225
  2. PROVIGIL [Suspect]
     Indication: NARCOLEPSY
     Route: 048
     Dates: start: 20020101, end: 20101225
  3. ZYRTEC [Concomitant]
     Indication: HYPERSENSITIVITY
     Dates: start: 20090101
  4. PRENATAL VITAMINS [Concomitant]
     Dates: start: 20100501

REACTIONS (2)
  - DRUG EXPOSURE DURING PREGNANCY [None]
  - FOETAL DISTRESS SYNDROME [None]
